FAERS Safety Report 6009090-6 (Version None)
Quarter: 2008Q4

REPORT INFORMATION
  Report Type: 
  Country: None (occurrence: None)
  Receive Date: 20081216
  Receipt Date: 20081202
  Transmission Date: 20090506
  Serious: Yes (Other)
  Sender: FDA-Public Use
  Company Number: 081204-0000970

PATIENT
  Age: 61 Year
  Sex: Female

DRUGS (11)
  1. INDOCIN [Suspect]
     Indication: MIGRAINE
     Dosage: 50 MG;TID;PO
     Route: 048
     Dates: end: 20070912
  2. ALBUTEROL [Concomitant]
  3. AMITRIPTYLINE HCL [Concomitant]
  4. ........................... [Concomitant]
  5. BECLOMETHASONE DIPROPIONATE [Concomitant]
  6. .............. [Concomitant]
  7. LANSOPRAZOLE [Concomitant]
  8. LITHIUM CARBONATE [Concomitant]
  9. ONDANSETRON HYDROCHLORIDE [Concomitant]
  10. TRAMADOL HYDROCHLORIDE [Concomitant]
  11. ZOLMITRIPTAN [Concomitant]

REACTIONS (2)
  - AUTOIMMUNE HEPATITIS [None]
  - GALLBLADDER DISORDER [None]
